FAERS Safety Report 7735180-3 (Version None)
Quarter: 2011Q3

REPORT INFORMATION
  Report Type: 
  Country: None (occurrence: None)
  Receive Date: 20110907
  Receipt Date: 20110829
  Transmission Date: 20111222
  Serious: Yes (Hospitalization)
  Sender: FDA-Public Use
  Company Number: US-PURDUE-USA-2010-0055471

PATIENT
  Sex: Female

DRUGS (2)
  1. OXYCONTIN [Suspect]
     Indication: SYSTEMIC LUPUS ERYTHEMATOSUS
  2. OXYCONTIN [Suspect]
     Indication: RHEUMATOID ARTHRITIS
     Dosage: 480 MG, Q12H
     Dates: start: 20100901

REACTIONS (18)
  - DECREASED APPETITE [None]
  - RENAL FAILURE [None]
  - DRUG INEFFECTIVE [None]
  - ABDOMINAL DISTENSION [None]
  - DRUG WITHDRAWAL SYNDROME [None]
  - DIARRHOEA HAEMORRHAGIC [None]
  - ABNORMAL FAECES [None]
  - BLOOD PRESSURE INCREASED [None]
  - VOMITING [None]
  - GASTRIC ULCER [None]
  - FAECES DISCOLOURED [None]
  - WEIGHT INCREASED [None]
  - INADEQUATE ANALGESIA [None]
  - HYPERHIDROSIS [None]
  - FLATULENCE [None]
  - ABDOMINAL PAIN UPPER [None]
  - NAUSEA [None]
  - DRUG EFFECT DECREASED [None]
